FAERS Safety Report 7998241-X (Version None)
Quarter: 2011Q4

REPORT INFORMATION
  Report Type: 
  Country: None (occurrence: None)
  Receive Date: 20111221
  Receipt Date: 20110511
  Transmission Date: 20120403
  Serious: No
  Sender: FDA-Public Use
  Company Number: US-GLAXOSMITHKLINE-A0926977A

PATIENT
  Age: 49 Year
  Sex: Female

DRUGS (10)
  1. LOVAZA [Suspect]
     Indication: BLOOD CHOLESTEROL
     Dosage: 4CAP PER DAY
     Route: 048
     Dates: start: 20100501
  2. VITAMIN D [Concomitant]
  3. FIBER [Concomitant]
  4. LISINOPRIL [Concomitant]
  5. CYMBALTA [Concomitant]
  6. NABUMETONE [Concomitant]
  7. TOPAMAX [Concomitant]
  8. VITAMIN [Concomitant]
     Dosage: 1TAB PER DAY
  9. KADIAN [Concomitant]
  10. KOMBINAX [Concomitant]

REACTIONS (1)
  - DYSPEPSIA [None]
